FAERS Safety Report 12234390 (Version 7)
Quarter: 2016Q4

REPORT INFORMATION
  Report Type: Spontaneous
  Country: CA (occurrence: CA)
  Receive Date: 20160404
  Receipt Date: 20161212
  Transmission Date: 20170207
  Serious: Yes (Other)
  Sender: FDA-Public Use
  Company Number: CA-GLAXOSMITHKLINE-CA2014GSK022119

PATIENT
  Age: 53 Year
  Sex: Female

DRUGS (2)
  1. BENLYSTA [Suspect]
     Active Substance: BELIMUMAB
     Indication: SYSTEMIC LUPUS ERYTHEMATOSUS
     Dosage: 960 MG, Z
     Route: 042
     Dates: start: 20130614, end: 20150325
  2. BENLYSTA [Suspect]
     Active Substance: BELIMUMAB
     Dosage: 850 MG, Z
     Route: 042

REACTIONS (16)
  - Visual impairment [Recovered/Resolved]
  - Intra-cerebral aneurysm operation [Unknown]
  - Nonspecific reaction [Unknown]
  - Off label use [Unknown]
  - Post procedural complication [Unknown]
  - Intracranial aneurysm [Unknown]
  - Cerebrovascular accident [Unknown]
  - Systemic lupus erythematosus [Unknown]
  - Cellulitis [Unknown]
  - Ear infection [Unknown]
  - Discomfort [Unknown]
  - Surgery [Unknown]
  - Infection [Not Recovered/Not Resolved]
  - Ear pain [Unknown]
  - Fatigue [Unknown]
  - Drug ineffective [Unknown]

NARRATIVE: CASE EVENT DATE: 201410
